FAERS Safety Report 8226456-4 (Version None)
Quarter: 2012Q1

REPORT INFORMATION
  Report Type: 
  Country: None (occurrence: None)
  Receive Date: 20120322
  Receipt Date: 20120312
  Transmission Date: 20120608
  Serious: Yes (Other)
  Sender: FDA-Public Use
  Company Number: US-AMGEN-USASP2011009421

PATIENT
  Age: 83 Year
  Sex: Female
  Weight: 57.596 kg

DRUGS (1)
  1. PROLIA [Suspect]
     Indication: OSTEOPOROSIS
     Dosage: 60 MG, ONE TIME DOSE
     Route: 058
     Dates: start: 20101130

REACTIONS (3)
  - MOBILITY DECREASED [None]
  - BONE PAIN [None]
  - BONE DISORDER [None]
